FAERS Safety Report 14220879 (Version 2)
Quarter: 2017Q4

REPORT INFORMATION
  Report Type: Report from Study
  Country: US (occurrence: US)
  Receive Date: 20171124
  Receipt Date: 20171124
  Transmission Date: 20180321
  Serious: No
  Sender: FDA-Public Use
  Company Number: US-JAZZ-2016-US-023760

PATIENT
  Sex: Female

DRUGS (22)
  1. DOXYCYCLINE                        /00055702/ [Concomitant]
     Active Substance: DOXYCYCLINE
  2. CALCIUM MAGNESIUM WITH VITAMIN D3 [Concomitant]
  3. THYROID [Concomitant]
     Active Substance: LEVOTHYROXINE\LIOTHYRONINE
  4. XYREM [Suspect]
     Active Substance: SODIUM OXYBATE
     Indication: NARCOLEPSY
     Dosage: 3 G, BID
     Route: 048
     Dates: start: 2009, end: 2009
  5. XYREM [Suspect]
     Active Substance: SODIUM OXYBATE
     Dosage: , BID
     Route: 048
     Dates: start: 200903, end: 200904
  6. ZANAFLEX [Concomitant]
     Active Substance: TIZANIDINE HYDROCHLORIDE
  7. GLUCOSAMINE + CHONDROITIN          /01430901/ [Concomitant]
  8. KLONOPIN [Concomitant]
     Active Substance: CLONAZEPAM
  9. XYREM [Suspect]
     Active Substance: SODIUM OXYBATE
     Dosage: 4.5G, BID
     Route: 048
     Dates: start: 200905
  10. DHEA [Concomitant]
     Active Substance: PRASTERONE
  11. PERCOCET                           /00446701/ [Concomitant]
     Active Substance: ACETAMINOPHEN\OXYCODONE HYDROCHLORIDE\OXYCODONE TEREPHTHALATE
  12. BACLOFEN. [Concomitant]
     Active Substance: BACLOFEN
  13. FLEXERIL [Concomitant]
     Active Substance: CYCLOBENZAPRINE HYDROCHLORIDE
  14. IODINE                             /00080001/ [Concomitant]
  15. MORPHINE SULFATE. [Concomitant]
     Active Substance: MORPHINE SULFATE
  16. ADDERALL [Concomitant]
     Active Substance: AMPHETAMINE ASPARTATE\AMPHETAMINE SULFATE\DEXTROAMPHETAMINE SACCHARATE\DEXTROAMPHETAMINE SULFATE
  17. DICLOFENAC [Concomitant]
     Active Substance: DICLOFENAC
  18. L-LYSINE                           /00919901/ [Concomitant]
  19. VALACYCLOVIR HCL [Concomitant]
     Active Substance: VALACYCLOVIR HYDROCHLORIDE
  20. PROGESTERONE. [Concomitant]
     Active Substance: PROGESTERONE
  21. COQ 10 [Concomitant]
     Active Substance: UBIDECARENONE
  22. 5-METHYLTETRAHYDROFOLATE [Concomitant]

REACTIONS (2)
  - Disability [Not Recovered/Not Resolved]
  - Gait inability [None]
